FAERS Safety Report 18858065 (Version 1)
Quarter: 2021Q1

REPORT INFORMATION
  Report Type: Spontaneous
  Country: US (occurrence: US)
  Receive Date: 20210206
  Receipt Date: 20210206
  Transmission Date: 20210420
  Serious: Yes (Hospitalization)
  Sender: FDA-Public Use
  Company Number: None

PATIENT
  Age: 66 Year
  Sex: Female
  Weight: 90.7 kg

DRUGS (5)
  1. DUONEB 3ML NEB [Concomitant]
     Dates: start: 20210125, end: 20210125
  2. METHYLPREDNISOLONE 125MG IV [Concomitant]
     Dates: start: 20210125, end: 20210125
  3. ACETAMINOPHEN 1000MG PO ONCE [Concomitant]
     Dates: start: 20210125, end: 20210125
  4. DIPHENHYDRAMINE 25MG IV ONCE [Concomitant]
     Dates: start: 20210125, end: 20210125
  5. BAMLANIVIMAB. [Suspect]
     Active Substance: BAMLANIVIMAB
     Indication: COVID-19
     Dosage: ?          OTHER FREQUENCY:ONCE;?
     Route: 042
     Dates: start: 20210125, end: 20210125

REACTIONS (4)
  - Wheezing [None]
  - Tachypnoea [None]
  - Flushing [None]
  - Hypoxia [None]

NARRATIVE: CASE EVENT DATE: 20210125
